FAERS Safety Report 18246448 (Version 4)
Quarter: 2020Q3

REPORT INFORMATION
  Report Type: Report from Study
  Country: US (occurrence: US)
  Receive Date: 20200909
  Receipt Date: 20200923
  Transmission Date: 20201103
  Serious: No
  Sender: FDA-Public Use
  Company Number: NVSC2020US241531

PATIENT
  Sex: Female

DRUGS (3)
  1. GLATOPA [Suspect]
     Active Substance: GLATIRAMER ACETATE
     Dosage: 40 MG, TID
     Route: 065
  2. GLATOPA [Suspect]
     Active Substance: GLATIRAMER ACETATE
     Indication: MULTIPLE SCLEROSIS
     Dosage: QD (ONCE A DAY)
     Route: 065
  3. GLATOPA [Suspect]
     Active Substance: GLATIRAMER ACETATE
     Dosage: SOLUTION
     Route: 058

REACTIONS (7)
  - Arthralgia [Unknown]
  - Pain [Unknown]
  - Skin reaction [Unknown]
  - Injection site vesicles [Unknown]
  - Injection site scar [Unknown]
  - Injection site pain [Unknown]
  - Body temperature increased [Unknown]
